FAERS Safety Report 20942967 (Version 5)
Quarter: 2023Q1

REPORT INFORMATION
  Report Type: Report from Study
  Country: US (occurrence: US)
  Receive Date: 20220610
  Receipt Date: 20230110
  Transmission Date: 20230417
  Serious: Yes (Other)
  Sender: FDA-Public Use
  Company Number: US-ABBVIE-22K-163-4426114-00

PATIENT
  Sex: Male

DRUGS (2)
  1. HUMIRA [Suspect]
     Active Substance: ADALIMUMAB
     Indication: Crohn^s disease
     Dosage: CITRATE FREE, INCREASED
     Route: 058
     Dates: start: 201209
  2. HUMIRA [Suspect]
     Active Substance: ADALIMUMAB
     Dosage: CITRATE FREE
     Route: 058

REACTIONS (17)
  - Hernia [Recovering/Resolving]
  - Oral infection [Recovering/Resolving]
  - Gastrooesophageal reflux disease [Recovering/Resolving]
  - Abdominal pain upper [Recovering/Resolving]
  - Tonsillar hypertrophy [Recovering/Resolving]
  - Asthenia [Unknown]
  - Memory impairment [Unknown]
  - Full blood count abnormal [Unknown]
  - Weight decreased [Unknown]
  - Dehydration [Unknown]
  - Confusional state [Unknown]
  - Pain [Unknown]
  - Ulcer [Recovering/Resolving]
  - COVID-19 [Recovering/Resolving]
  - Oesophageal obstruction [Recovering/Resolving]
  - Choking [Recovering/Resolving]
  - Adverse food reaction [Unknown]

NARRATIVE: CASE EVENT DATE: 20140101
